FAERS Safety Report 5872235-2 (Version None)
Quarter: 2008Q3

REPORT INFORMATION
  Report Type: 
  Country: None (occurrence: None)
  Receive Date: 20080905
  Receipt Date: 20080610
  Transmission Date: 20090109
  Serious: No
  Sender: FDA-Public Use
  Company Number: JP-EISAI MEDICAL RESEARCH-E2090-00538-SPO-JP

PATIENT
  Sex: Male
  Weight: 12 kg

DRUGS (2)
  1. EXCEGRAN [Suspect]
     Indication: EPILEPSY
     Route: 048
     Dates: start: 20071122
  2. LEXIN [Concomitant]
     Indication: EPILEPSY
     Route: 048
     Dates: start: 20070525

REACTIONS (1)
  - METABOLIC ACIDOSIS [None]
